FAERS Safety Report 17561974 (Version 3)
Quarter: 2020Q1

REPORT INFORMATION
  Report Type: Spontaneous
  Country: CN (occurrence: CN)
  Receive Date: 20200319
  Receipt Date: 20200331
  Transmission Date: 20200409
  Serious: Yes (Other)
  Sender: FDA-Public Use
  Company Number: CN-GILEAD-2020-0455375

PATIENT
  Age: 63 Year
  Sex: Male

DRUGS (4)
  1. ZOPICLONE [Concomitant]
     Active Substance: ZOPICLONE
     Dosage: 0.5 MG, QHS
     Route: 065
  2. STILNOX [Suspect]
     Active Substance: ZOLPIDEM TARTRATE
     Dosage: 0.5 MG, TID
     Route: 065
  3. STILNOX [Suspect]
     Active Substance: ZOLPIDEM TARTRATE
     Indication: PRODUCT USED FOR UNKNOWN INDICATION
     Dosage: 5 MG, QHS
     Route: 065
  4. VEMLIDY [Suspect]
     Active Substance: TENOFOVIR ALAFENAMIDE FUMARATE
     Indication: HEPATITIS B
     Route: 065

REACTIONS (4)
  - Hepatic pain [Unknown]
  - Drug ineffective [Unknown]
  - Drug interaction [Unknown]
  - Hepatitis B [Recovering/Resolving]
